FAERS Safety Report 5871860-2 (Version None)
Quarter: 2008Q3

REPORT INFORMATION
  Report Type: 
  Country: None (occurrence: None)
  Receive Date: 20080902
  Receipt Date: 20060213
  Transmission Date: 20090109
  Serious: Yes (Other)
  Sender: FDA-Public Use
  Company Number: 2008AL009356

PATIENT
  Age: 56 Year
  Sex: Female

DRUGS (2)
  1. DICLOFENAC SODIUM [Suspect]
     Indication: BACK PAIN
     Dates: start: 20060105, end: 20060105
  2. NAPROXEN [Concomitant]

REACTIONS (4)
  - BLINDNESS [None]
  - ERYTHEMA [None]
  - SWOLLEN TONGUE [None]
  - VOMITING [None]
